FAERS Safety Report 11472479 (Version 2)
Quarter: 2015Q4

REPORT INFORMATION
  Report Type: Spontaneous
  Country: US (occurrence: US)
  Receive Date: 20150908
  Receipt Date: 20151020
  Transmission Date: 20160304
  Serious: Yes (Other)
  Sender: FDA-Public Use
  Company Number: US-JNJFOC-20150900063

PATIENT
  Age: 34 Year
  Sex: Female

DRUGS (1)
  1. TOPAMAX [Suspect]
     Active Substance: TOPIRAMATE
     Indication: MIGRAINE PROPHYLAXIS
     Route: 048
     Dates: start: 20150807

REACTIONS (16)
  - Neuropathy peripheral [Recovered/Resolved]
  - Nausea [Recovered/Resolved]
  - Disturbance in attention [Recovered/Resolved]
  - Cardiac flutter [Recovered/Resolved]
  - Diplopia [Recovered/Resolved]
  - Somnolence [Recovered/Resolved]
  - Loss of consciousness [Recovered/Resolved]
  - Impaired work ability [Recovered/Resolved]
  - Migraine [Recovered/Resolved]
  - Pruritus generalised [Recovered/Resolved]
  - Amnesia [Recovered/Resolved]
  - Fear of death [Recovered/Resolved]
  - Malaise [Recovered/Resolved]
  - Temperature intolerance [Recovered/Resolved]
  - Constipation [Recovered/Resolved]
  - Decreased appetite [Recovered/Resolved]

NARRATIVE: CASE EVENT DATE: 201508
